FAERS Safety Report 16178961 (Version 3)
Quarter: 2019Q4

REPORT INFORMATION
  Report Type: Spontaneous
  Country: JP (occurrence: JP)
  Receive Date: 20190410
  Receipt Date: 20191011
  Transmission Date: 20200122
  Serious: Yes (Death, Other)
  Sender: FDA-Public Use
  Company Number: JP-INDIVIOR LIMITED-INDV-118784-2019

PATIENT
  Age: 56 Year
  Sex: Male

DRUGS (2)
  1. LEPETAN 0.2 MG INJECTION [Suspect]
     Active Substance: BUPRENORPHINE HYDROCHLORIDE
     Indication: ABNORMAL BEHAVIOUR
  2. LEPETAN 0.2 MG INJECTION [Suspect]
     Active Substance: BUPRENORPHINE HYDROCHLORIDE
     Indication: RESTLESSNESS
     Dosage: UNK
     Route: 065

REACTIONS (3)
  - Cardiac arrest [Fatal]
  - Product use in unapproved indication [Unknown]
  - Respiratory arrest [Fatal]
